FAERS Safety Report 23306368 (Version 1)
Quarter: 2023Q4

REPORT INFORMATION
  Report Type: Spontaneous
  Country: RO (occurrence: RO)
  Receive Date: 20231218
  Receipt Date: 20231218
  Transmission Date: 20240110
  Serious: Yes (Hospitalization)
  Sender: FDA-Public Use
  Company Number: RO-NOVOPROD-1149617

PATIENT
  Age: 49 Year
  Sex: Female

DRUGS (2)
  1. RYBELSUS [Suspect]
     Active Substance: SEMAGLUTIDE
     Dosage: 7 MG, QD
     Dates: start: 202209, end: 202304
  2. RYBELSUS [Suspect]
     Active Substance: SEMAGLUTIDE
     Indication: Product used for unknown indication
     Dosage: 3 MG, QD

REACTIONS (4)
  - Blood triglycerides increased [Unknown]
  - Transaminases increased [Unknown]
  - Lipase increased [Unknown]
  - Vomiting [Unknown]
